FAERS Safety Report 24344339 (Version 3)
Quarter: 2025Q2

REPORT INFORMATION
  Report Type: Report from Study
  Country: IT (occurrence: IT)
  Receive Date: 20240920
  Receipt Date: 20250410
  Transmission Date: 20250717
  Serious: Yes (Hospitalization, Other)
  Sender: TAKEDA
  Company Number: IT-TAKEDA-2021TUS053627

PATIENT
  Age: 8 Year
  Sex: Female

DRUGS (5)
  1. TEDUGLUTIDE [Suspect]
     Active Substance: TEDUGLUTIDE
     Indication: Short-bowel syndrome
  2. TEDUGLUTIDE [Suspect]
     Active Substance: TEDUGLUTIDE
     Dosage: 0.1 MILLILITER, QD
     Dates: start: 20210209
  3. TEDUGLUTIDE [Suspect]
     Active Substance: TEDUGLUTIDE
     Dosage: 0.1 MILLILITER, QD
  4. TEDUGLUTIDE [Suspect]
     Active Substance: TEDUGLUTIDE
     Dosage: 0.1 MILLILITER, QD
  5. TEDUGLUTIDE [Suspect]
     Active Substance: TEDUGLUTIDE
     Dosage: 0.12 MILLILITER, QD

REACTIONS (4)
  - Abdominal adhesions [Recovering/Resolving]
  - Intestinal obstruction [Recovering/Resolving]
  - Gastroenteritis [Recovered/Resolved]
  - Gastrointestinal viral infection [Recovered/Resolved]

NARRATIVE: CASE EVENT DATE: 20240829
